FAERS Safety Report 13951152 (Version 1)
Quarter: 2017Q3

REPORT INFORMATION
  Report Type: Spontaneous
  Country: US (occurrence: US)
  Receive Date: 20170908
  Receipt Date: 20170908
  Transmission Date: 20171128
  Serious: No
  Sender: FDA-Public Use
  Company Number: US-JAZZ-2017-US-008714

PATIENT
  Sex: Male

DRUGS (13)
  1. XYREM [Suspect]
     Active Substance: SODIUM OXYBATE
     Dosage: 3G, BID
     Route: 048
     Dates: start: 201705
  2. ADRECORT [Concomitant]
  3. BENZOYL PEROXIDE. [Concomitant]
     Active Substance: BENZOYL PEROXIDE
  4. NUVIGIL [Concomitant]
     Active Substance: ARMODAFINIL
  5. ZINC. [Concomitant]
     Active Substance: ZINC
  6. XYREM [Suspect]
     Active Substance: SODIUM OXYBATE
     Indication: NARCOLEPSY
     Dosage: 2.25G, BID
     Route: 048
     Dates: start: 201602, end: 201602
  7. ADVIL (MEFENAMIC ACID) [Concomitant]
     Active Substance: MEFENAMIC ACID
  8. XYREM [Suspect]
     Active Substance: SODIUM OXYBATE
     Dosage: DOSE ADJUSTMENTS
     Route: 048
     Dates: start: 201602, end: 201705
  9. ALLEGRA-D                          /01367401/ [Concomitant]
  10. OMEPRAZOLE. [Concomitant]
     Active Substance: OMEPRAZOLE
  11. ZEGERID                            /00661201/ [Concomitant]
     Active Substance: OMEPRAZOLE
  12. ALEVE [Concomitant]
     Active Substance: NAPROXEN SODIUM
  13. OMEGA-3 FISH OIL [Concomitant]
     Active Substance: FISH OIL\OMEGA-3 FATTY ACIDS

REACTIONS (1)
  - Poor quality sleep [Unknown]

NARRATIVE: CASE EVENT DATE: 2017
